FAERS Safety Report 16688221 (Version 1)
Quarter: 2019Q3

REPORT INFORMATION
  Report Type: Spontaneous
  Country: US (occurrence: US)
  Receive Date: 20190809
  Receipt Date: 20190809
  Transmission Date: 20191004
  Serious: No
  Sender: FDA-Public Use
  Company Number: US-AMERICAN REGENT INC-20180391

PATIENT
  Age: 26 Year
  Sex: Female
  Weight: 65.5 kg

DRUGS (24)
  1. VENOFER [Suspect]
     Active Substance: IRON SUCROSE
     Dosage: 50 OTHER
     Route: 065
     Dates: start: 20171115
  2. MIRCERA [Suspect]
     Active Substance: METHOXY POLYETHYLENE GLYCOL-EPOETIN BETA
     Dosage: 100 OTHER, 1 IN 2 WK
     Dates: start: 20180117, end: 20180131
  3. LORAZEPAM. [Concomitant]
     Active Substance: LORAZEPAM
     Indication: PRODUCT USED FOR UNKNOWN INDICATION
     Dosage: 0.5 MG, 3 IN 1 WEEK
     Route: 048
  4. CHOLECALCIFEROL [Concomitant]
     Active Substance: CHOLECALCIFEROL
     Indication: PRODUCT USED FOR UNKNOWN INDICATION
     Dosage: 2000 IU (2000 IU,1 IN 1 D)
     Route: 048
  5. MIRCERA [Suspect]
     Active Substance: METHOXY POLYETHYLENE GLYCOL-EPOETIN BETA
     Dosage: 75 OTHER, 1 IN 2 WK
     Dates: start: 20171122, end: 20171206
  6. MIRCERA [Suspect]
     Active Substance: METHOXY POLYETHYLENE GLYCOL-EPOETIN BETA
     Dosage: 100 OTHER, 1 IN 2 WK
     Dates: start: 20171206, end: 20180131
  7. MIRCERA [Suspect]
     Active Substance: METHOXY POLYETHYLENE GLYCOL-EPOETIN BETA
     Dosage: 200 OTHER, 1 IN 2 WK 29 DAYS
     Dates: start: 20180214, end: 20180314
  8. MIRCERA [Suspect]
     Active Substance: METHOXY POLYETHYLENE GLYCOL-EPOETIN BETA
     Dosage: 200 OTHER, 1 IN 2 WK
     Dates: start: 20180314, end: 20180314
  9. DIVALPROEX [Concomitant]
     Active Substance: DIVALPROEX SODIUM
     Indication: PRODUCT USED FOR UNKNOWN INDICATION
     Dosage: 500 MG (250 MG, 2 IN 1 D)
     Route: 048
  10. SENSIPAR [Concomitant]
     Active Substance: CINACALCET HYDROCHLORIDE
     Indication: PRODUCT USED FOR UNKNOWN INDICATION
     Dosage: 30 MG (30 MG, 1 IN 1 D)
     Route: 048
  11. MIRCERA [Suspect]
     Active Substance: METHOXY POLYETHYLENE GLYCOL-EPOETIN BETA
     Dosage: 25OCT - 50 OTHER
     Route: 065
     Dates: end: 201803
  12. CALCITRIOL. [Concomitant]
     Active Substance: CALCITRIOL
     Indication: PRODUCT USED FOR UNKNOWN INDICATION
     Dosage: 2 MG, EVERY HD TREATMENT
     Route: 048
  13. VENOFER [Suspect]
     Active Substance: IRON SUCROSE
     Dosage: 25OCT - 50 OTHER
     Route: 065
  14. MIRCERA [Suspect]
     Active Substance: METHOXY POLYETHYLENE GLYCOL-EPOETIN BETA
     Dosage: 100 OTHER, 1 IN 2 WK
     Dates: start: 20180103, end: 20180131
  15. VENOFER [Suspect]
     Active Substance: IRON SUCROSE
     Dosage: 50 OTHER
     Route: 065
     Dates: start: 20171108
  16. VENOFER [Suspect]
     Active Substance: IRON SUCROSE
     Dosage: 01NOV - 50 OTHER
     Route: 065
  17. MIRCERA [Suspect]
     Active Substance: METHOXY POLYETHYLENE GLYCOL-EPOETIN BETA
     Dosage: 60 OTHER, 1 IN 2 WK
     Dates: start: 20171108, end: 20171122
  18. MIRCERA [Suspect]
     Active Substance: METHOXY POLYETHYLENE GLYCOL-EPOETIN BETA
     Dosage: 100 OTHER, 1 IN 2 WK
     Dates: start: 20171220, end: 20180131
  19. MIRCERA [Suspect]
     Active Substance: METHOXY POLYETHYLENE GLYCOL-EPOETIN BETA
     Dosage: 200 OTHER, 1 IN 2 WK
     Dates: start: 20180228, end: 20180314
  20. SENSIPAR [Concomitant]
     Active Substance: CINACALCET HYDROCHLORIDE
     Dosage: 60 MG (60 MG, 1 IN 1 D)
     Route: 048
  21. MIRCERA [Suspect]
     Active Substance: METHOXY POLYETHYLENE GLYCOL-EPOETIN BETA
     Dosage: 150 OTHER, 1 IN 2 WK
     Dates: start: 20180131, end: 20180214
  22. MIRCERA [Suspect]
     Active Substance: METHOXY POLYETHYLENE GLYCOL-EPOETIN BETA
     Dosage: 50 OTHER, 1 IN 2 WK
     Dates: start: 20171018, end: 20171108
  23. PHOSLO [Concomitant]
     Active Substance: CALCIUM ACETATE
     Indication: PRODUCT USED FOR UNKNOWN INDICATION
     Dosage: 667 MG, 2 CAPSULE THREE TIMES
     Route: 065
  24. LIDO-PRILO CAINE [Concomitant]
     Indication: PRODUCT USED FOR UNKNOWN INDICATION
     Dosage: TO ACCESS SITE BEFORE DIALYSIS
     Route: 065

REACTIONS (6)
  - Blood parathyroid hormone increased [Unknown]
  - Haemoglobin decreased [Unknown]
  - Cough [Unknown]
  - Nausea [Unknown]
  - Headache [Unknown]
  - Blood phosphorus increased [Unknown]

NARRATIVE: CASE EVENT DATE: 201806
